FAERS Safety Report 9238592 (Version 1)
Quarter: 2013Q2

REPORT INFORMATION
  Report Type: Spontaneous
  Country: US (occurrence: US)
  Receive Date: 20130418
  Receipt Date: 20130418
  Transmission Date: 20140414
  Serious: No
  Sender: FDA-Public Use
  Company Number: US-ASTRAZENECA-2013SE18930

PATIENT
  Sex: Male

DRUGS (2)
  1. CRESTOR [Suspect]
     Route: 048
     Dates: end: 201205
  2. CRESTOR [Suspect]
     Route: 048
     Dates: start: 201207

REACTIONS (6)
  - Gait disturbance [Unknown]
  - Limb discomfort [Unknown]
  - Myalgia [Recovering/Resolving]
  - Myalgia [Recovering/Resolving]
  - Pain in extremity [Unknown]
  - Muscle tightness [Unknown]
